FAERS Safety Report 16853262 (Version 1)
Quarter: 2019Q3

REPORT INFORMATION
  Report Type: Spontaneous
  Country: US (occurrence: US)
  Receive Date: 20190804
  Receipt Date: 20190804
  Transmission Date: 20191005
  Serious: Yes (Life-Threatening, Hospitalization, Other)
  Sender: FDA-Public Use
  Company Number: None

PATIENT
  Age: 62 Year
  Sex: Female
  Weight: 58.97 kg

DRUGS (1)
  1. CYCLOSPORINE MODIFIED [Suspect]
     Active Substance: CYCLOSPORINE
     Indication: LIVER TRANSPLANT
     Dates: start: 20110201

REACTIONS (4)
  - Lymphoma [None]
  - Skin cancer [None]
  - Hypertension [None]
  - Blood triglycerides increased [None]

NARRATIVE: CASE EVENT DATE: 20180101
